FAERS Safety Report 7377330-7 (Version None)
Quarter: 2011Q1

REPORT INFORMATION
  Report Type: 
  Country: None (occurrence: None)
  Receive Date: 20110328
  Receipt Date: 20110316
  Transmission Date: 20110831
  Serious: Yes (Hospitalization, Other)
  Sender: FDA-Public Use
  Company Number: US-JNJFOC-20110307550

PATIENT
  Sex: Female
  Weight: 95.26 kg

DRUGS (1)
  1. DURAGESIC-50 [Suspect]
     Indication: NEUROPATHY PERIPHERAL
     Route: 062

REACTIONS (12)
  - CONVULSION [None]
  - PAIN [None]
  - THYROID NEOPLASM [None]
  - FEELING ABNORMAL [None]
  - TONGUE DISORDER [None]
  - INCORRECT DRUG ADMINISTRATION DURATION [None]
  - FALL [None]
  - WEIGHT INCREASED [None]
  - DIABETIC NEUROPATHY [None]
  - SOMNOLENCE [None]
  - CARPAL TUNNEL SYNDROME [None]
  - WITHDRAWAL SYNDROME [None]
